FAERS Safety Report 17213935 (Version 1)
Quarter: 2019Q4

REPORT INFORMATION
  Report Type: Spontaneous
  Country: US (occurrence: US)
  Receive Date: 20191230
  Receipt Date: 20191230
  Transmission Date: 20200122
  Serious: No
  Sender: FDA-Public Use
  Company Number: US-PFIZER INC-2019552408

PATIENT
  Age: 74 Year
  Sex: Female
  Weight: 90.72 kg

DRUGS (2)
  1. DILANTIN [Suspect]
     Active Substance: PHENYTOIN
     Indication: SEIZURE
     Dosage: 2 CAPSULES, ONCE A DAY
     Route: 048
  2. DILANTIN [Suspect]
     Active Substance: PHENYTOIN
     Indication: SEIZURE
     Dosage: 300 MG, DAILY, (ONE CAPSULE IN THE MORNING AND TWO CAPSULES AT NIGHT)
     Route: 048

REACTIONS (4)
  - Stress [Unknown]
  - Drug level increased [Unknown]
  - Cystitis [Unknown]
  - Intentional dose omission [Unknown]

NARRATIVE: CASE EVENT DATE: 201912
